FAERS Safety Report 6500161-4 (Version None)
Quarter: 2009Q4

REPORT INFORMATION
  Report Type: 
  Country: None (occurrence: None)
  Receive Date: 20091216
  Receipt Date: 20091208
  Transmission Date: 20100525
  Serious: Yes (Other)
  Sender: FDA-Public Use
  Company Number: FR-AMGEN-UK378900

PATIENT
  Age: 65 Year
  Sex: Male

DRUGS (1)
  1. NPLATE [Suspect]
     Indication: AUTOIMMUNE DISORDER

REACTIONS (2)
  - COLITIS [None]
  - RECTAL HAEMORRHAGE [None]
